FAERS Safety Report 11277805 (Version 1)
Quarter: 2015Q3

REPORT INFORMATION
  Report Type: Spontaneous
  Country: US (occurrence: US)
  Receive Date: 20150716
  Receipt Date: 20150716
  Transmission Date: 20151125
  Serious: Yes (Hospitalization)
  Sender: FDA-Public Use
  Company Number: US-PURDUE PHARMA-USA-2015-0124914

PATIENT
  Age: 62 Year
  Sex: Male
  Weight: 126 kg

DRUGS (2)
  1. OXYCONTIN [Suspect]
     Active Substance: OXYCODONE HYDROCHLORIDE
     Dosage: 80 MG, BID
     Route: 048
  2. OXYCONTIN [Suspect]
     Active Substance: OXYCODONE HYDROCHLORIDE
     Indication: PRODUCT USED FOR UNKNOWN INDICATION
     Dosage: 2 X 40 MG, UNK
     Route: 048
     Dates: start: 20150711

REACTIONS (4)
  - Drug dose omission [Unknown]
  - Lung disorder [Unknown]
  - Abnormal behaviour [Unknown]
  - Drug intolerance [Unknown]
